FAERS Safety Report 4850442-5 (Version None)
Quarter: 2005Q4

REPORT INFORMATION
  Report Type: 
  Country: None (occurrence: None)
  Receive Date: 20051207
  Receipt Date: 20051207
  Transmission Date: 20060501
  Serious: Yes (Hospitalization)
  Sender: FDA-Public Use
  Company Number: None

PATIENT
  Age: 50 Year
  Sex: Female
  Weight: 70 kg

DRUGS (2)
  1. WARFARIN SODIUM [Suspect]
     Indication: THROMBOSIS PROPHYLAXIS
     Dosage: 25MG PO QD
     Route: 048
  2. ENOXAPARIN SODIUM [Suspect]
     Indication: THROMBOSIS PROPHYLAXIS
     Dosage: 80MG SC BID
     Route: 058

REACTIONS (5)
  - ABNORMAL FAECES [None]
  - CONTUSION [None]
  - DIARRHOEA [None]
  - HAEMORRHAGE [None]
  - ULCER [None]
